FAERS Safety Report 4508084-7 (Version None)
Quarter: 2004Q4

REPORT INFORMATION
  Report Type: 
  Country: None (occurrence: None)
  Receive Date: 20041123
  Receipt Date: 20031009
  Transmission Date: 20050328
  Serious: No
  Sender: FDA-Public Use
  Company Number: US-GLAXOSMITHKLINE-A0429714A

PATIENT
  Age: 61 Year
  Sex: Female
  Weight: 65.9 kg

DRUGS (2)
  1. WELLBUTRIN [Suspect]
     Indication: ILL-DEFINED DISORDER
     Route: 048
  2. WELLBUTRIN [Suspect]
     Route: 048

REACTIONS (4)
  - RASH [None]
  - RASH VESICULAR [None]
  - SKIN IRRITATION [None]
  - URTICARIA [None]
